FAERS Safety Report 10240721 (Version 2)
Quarter: 2014Q3

REPORT INFORMATION
  Report Type: Spontaneous
  Country: IT (occurrence: None)
  Receive Date: 20140612
  Receipt Date: 20140703
  Transmission Date: 20150326
  Serious: Yes (Life-Threatening)
  Sender: FDA-Public Use
  Company Number: AUR-APL-2014-06120

PATIENT
  Age: 36 Year
  Sex: Female

DRUGS (3)
  1. SERTRALINE [Suspect]
     Active Substance: SERTRALINE HYDROCHLORIDE
     Route: 048
     Dates: start: 20140410, end: 20140501
  2. QUETIAPINE /01270902/ (QUETIAPINE FUMARATE) TABLET [Suspect]
     Active Substance: QUETIAPINE
     Indication: DEPRESSION
     Dates: start: 20140410, end: 20140501
  3. LAMOTRIGINE. [Suspect]
     Active Substance: LAMOTRIGINE
     Indication: DEPRESSION
     Route: 048
     Dates: start: 20140410, end: 20140501

REACTIONS (5)
  - Conjunctival abrasion [None]
  - Rash macular [None]
  - Secretion discharge [None]
  - Blister [None]
  - Oral disorder [None]

NARRATIVE: CASE EVENT DATE: 2014
